FAERS Safety Report 21990900 (Version 1)
Quarter: 2023Q1

REPORT INFORMATION
  Report Type: Spontaneous
  Country: US (occurrence: US)
  Receive Date: 20230214
  Receipt Date: 20230214
  Transmission Date: 20230417
  Serious: Yes (Other)
  Sender: FDA-Public Use
  Company Number: US-ASTELLAS-2023US003055

PATIENT
  Age: 88 Year
  Sex: Male

DRUGS (2)
  1. PADCEV [Suspect]
     Active Substance: ENFORTUMAB VEDOTIN-EJFV
     Indication: Bladder cancer
     Dosage: UNK UNK, OTHER (TWO WEEKS ON AND TWO WEEKS OFF) (HALF STRENGTH DOSAGE)
     Route: 042
     Dates: start: 202210, end: 202301
  2. AMLODIPINE [Concomitant]
     Active Substance: AMLODIPINE BESYLATE
     Indication: Hypertension
     Route: 048

REACTIONS (20)
  - Pleural effusion [Not Recovered/Not Resolved]
  - Condition aggravated [Not Recovered/Not Resolved]
  - Insomnia [Not Recovered/Not Resolved]
  - Dry eye [Recovering/Resolving]
  - Eyelid disorder [Recovering/Resolving]
  - Skin lesion [Recovering/Resolving]
  - Skin discolouration [Recovering/Resolving]
  - Daydreaming [Not Recovered/Not Resolved]
  - Disturbance in attention [Not Recovered/Not Resolved]
  - Fatigue [Not Recovered/Not Resolved]
  - Dyspnoea exertional [Not Recovered/Not Resolved]
  - Condition aggravated [Not Recovered/Not Resolved]
  - Fall [Recovered/Resolved]
  - Asthenia [Not Recovered/Not Resolved]
  - Heart rate increased [Recovering/Resolving]
  - Blood uric acid decreased [Unknown]
  - Fluid retention [Not Recovered/Not Resolved]
  - Condition aggravated [Not Recovered/Not Resolved]
  - Underdose [Recovered/Resolved]
  - Product use issue [Unknown]

NARRATIVE: CASE EVENT DATE: 20221001
